FAERS Safety Report 8351406-X (Version None)
Quarter: 2012Q2

REPORT INFORMATION
  Report Type: 
  Country: None (occurrence: None)
  Receive Date: 20120510
  Receipt Date: 20120501
  Transmission Date: 20120825
  Serious: Yes (Other)
  Sender: FDA-Public Use
  Company Number: CH-ASTRAZENECA-2012SE27833

PATIENT
  Age: 70 Year
  Sex: Female

DRUGS (5)
  1. KIESELERDE [Concomitant]
     Dates: start: 20120210
  2. ACIDIUM FOLICUM [Concomitant]
     Dates: start: 20120222
  3. CALCIMAGON D3 [Concomitant]
     Dates: start: 20100730
  4. PLACEBO [Suspect]
     Indication: BREAST CANCER
     Dosage: TWO TIMES A DAY
     Route: 048
     Dates: start: 20120222, end: 20120415
  5. FASLODEX [Suspect]
     Indication: BREAST CANCER
     Route: 030
     Dates: start: 20120222, end: 20120321

REACTIONS (1)
  - BASAL CELL CARCINOMA [None]
